FAERS Safety Report 22117479 (Version 3)
Quarter: 2024Q3

REPORT INFORMATION
  Report Type: Report from Study
  Country: US (occurrence: US)
  Receive Date: 20230321
  Receipt Date: 20240730
  Transmission Date: 20241017
  Serious: Yes (Disabling)
  Sender: NOVARTIS
  Company Number: US-002147023-NVSC2023US062237

PATIENT
  Sex: Male

DRUGS (3)
  1. ENTRESTO [Suspect]
     Active Substance: SACUBITRIL\VALSARTAN
     Indication: Cardiac valve disease
     Dosage: 1 MG, QD (24/26 MG)
     Route: 048
     Dates: start: 202207
  2. ENTRESTO [Suspect]
     Active Substance: SACUBITRIL\VALSARTAN
     Dosage: UNK, QD (24-26)
     Route: 048
  3. TORSEMIDE [Suspect]
     Active Substance: TORSEMIDE
     Indication: Fluid retention
     Dosage: 2 DOSAGE FORM, QD
     Route: 050

REACTIONS (3)
  - Fluid retention [Unknown]
  - Inappropriate schedule of product administration [Unknown]
  - Off label use [Unknown]
